FAERS Safety Report 20322539 (Version 1)
Quarter: 2022Q1

REPORT INFORMATION
  Report Type: Report from Study
  Country: MX (occurrence: MX)
  Receive Date: 20220111
  Receipt Date: 20220111
  Transmission Date: 20220423
  Serious: Yes (Hospitalization)
  Sender: FDA-Public Use
  Company Number: MX-TAKEDA-2021TUS035472

PATIENT
  Age: 21 Year
  Sex: Female

DRUGS (1)
  1. VEDOLIZUMAB [Suspect]
     Active Substance: VEDOLIZUMAB
     Indication: Colitis ulcerative
     Dosage: 300 MILLIGRAM
     Route: 042
     Dates: start: 20200917

REACTIONS (3)
  - Hospitalisation [Not Recovered/Not Resolved]
  - Headache [Recovered/Resolved]
  - Illness [Recovering/Resolving]

NARRATIVE: CASE EVENT DATE: 20210727
